FAERS Safety Report 7118666-4 (Version None)
Quarter: 2010Q4

REPORT INFORMATION
  Report Type: 
  Country: None (occurrence: None)
  Receive Date: 20101123
  Receipt Date: 20101111
  Transmission Date: 20110411
  Serious: Yes (Hospitalization)
  Sender: FDA-Public Use
  Company Number: US-BAYER-201032438NA

PATIENT
  Age: 27 Year
  Sex: Female
  Weight: 118 kg

DRUGS (6)
  1. YASMIN [Suspect]
     Indication: PRODUCT USED FOR UNKNOWN INDICATION
     Route: 048
     Dates: start: 20040801, end: 20090301
  2. YASMIN [Suspect]
     Route: 048
     Dates: start: 20090301, end: 20090901
  3. OCELLA [Suspect]
     Indication: PRODUCT USED FOR UNKNOWN INDICATION
     Route: 048
     Dates: start: 20040801, end: 20090301
  4. OCELLA [Suspect]
     Route: 048
     Dates: start: 20090301, end: 20090901
  5. YAZ [Suspect]
     Indication: PRODUCT USED FOR UNKNOWN INDICATION
     Route: 048
  6. NSAIDS OTC [Concomitant]

REACTIONS (1)
  - DEEP VEIN THROMBOSIS [None]
